FAERS Safety Report 6044531-X (Version None)
Quarter: 2009Q1

REPORT INFORMATION
  Report Type: 
  Country: None (occurrence: None)
  Receive Date: 20090120
  Receipt Date: 20090108
  Transmission Date: 20090719
  Serious: Yes (Disabling)
  Sender: FDA-Public Use
  Company Number: GB-ASTRAZENECA-2009GB00243

PATIENT
  Age: 46 Year
  Sex: Female

DRUGS (3)
  1. ZOLADEX [Suspect]
     Indication: BREAST CANCER
     Route: 058
     Dates: start: 20070601, end: 20071201
  2. ZOLADEX [Suspect]
     Route: 058
     Dates: start: 20081101
  3. ARIMIDEX [Suspect]
     Indication: BREAST CANCER
     Route: 048
     Dates: start: 20070601

REACTIONS (6)
  - ABDOMINAL DISTENSION [None]
  - CONSTIPATION [None]
  - HEMICEPHALALGIA [None]
  - MENSTRUAL DISORDER [None]
  - QUALITY OF LIFE DECREASED [None]
  - WEIGHT INCREASED [None]
